FAERS Safety Report 25619267 (Version 1)
Quarter: 2025Q3

REPORT INFORMATION
  Report Type: Spontaneous
  Country: AU (occurrence: AU)
  Receive Date: 20250729
  Receipt Date: 20250729
  Transmission Date: 20251020
  Serious: Yes (Other)
  Sender: MYLAN
  Company Number: AU-MYLANLABS-2025M1062874

PATIENT
  Age: 70 Year
  Sex: Female

DRUGS (60)
  1. FENOFIBRATE [Suspect]
     Active Substance: FENOFIBRATE
     Indication: Product used for unknown indication
     Dosage: 96 MILLIGRAM, PM (NOCTE)
  2. FENOFIBRATE [Suspect]
     Active Substance: FENOFIBRATE
     Dosage: 96 MILLIGRAM, PM (NOCTE)
     Route: 065
  3. FENOFIBRATE [Suspect]
     Active Substance: FENOFIBRATE
     Dosage: 96 MILLIGRAM, PM (NOCTE)
     Route: 065
  4. FENOFIBRATE [Suspect]
     Active Substance: FENOFIBRATE
     Dosage: 96 MILLIGRAM, PM (NOCTE)
  5. APIXABAN [Suspect]
     Active Substance: APIXABAN
     Indication: Product used for unknown indication
     Dosage: 5 MILLIGRAM, BID (5 MG 2X/DAY)
  6. APIXABAN [Suspect]
     Active Substance: APIXABAN
     Dosage: 5 MILLIGRAM, BID (5 MG 2X/DAY)
     Route: 065
  7. APIXABAN [Suspect]
     Active Substance: APIXABAN
     Dosage: 5 MILLIGRAM, BID (5 MG 2X/DAY)
     Route: 065
  8. APIXABAN [Suspect]
     Active Substance: APIXABAN
     Dosage: 5 MILLIGRAM, BID (5 MG 2X/DAY)
  9. FUROSEMIDE [Suspect]
     Active Substance: FUROSEMIDE
     Indication: Product used for unknown indication
  10. FUROSEMIDE [Suspect]
     Active Substance: FUROSEMIDE
  11. FUROSEMIDE [Suspect]
     Active Substance: FUROSEMIDE
     Route: 065
  12. FUROSEMIDE [Suspect]
     Active Substance: FUROSEMIDE
     Route: 065
  13. FUROSEMIDE [Suspect]
     Active Substance: FUROSEMIDE
     Dosage: 40 MILLIGRAM, AM (MANE)
  14. FUROSEMIDE [Suspect]
     Active Substance: FUROSEMIDE
     Dosage: 40 MILLIGRAM, AM (MANE)
  15. FUROSEMIDE [Suspect]
     Active Substance: FUROSEMIDE
     Dosage: 40 MILLIGRAM, AM (MANE)
     Route: 065
  16. FUROSEMIDE [Suspect]
     Active Substance: FUROSEMIDE
     Dosage: 40 MILLIGRAM, AM (MANE)
     Route: 065
  17. QUETIAPINE [Suspect]
     Active Substance: QUETIAPINE
     Indication: Product used for unknown indication
     Dosage: 150 MILLIGRAM, PM (NOCTE)
  18. QUETIAPINE [Suspect]
     Active Substance: QUETIAPINE
     Dosage: 150 MILLIGRAM, PM (NOCTE)
     Route: 065
  19. QUETIAPINE [Suspect]
     Active Substance: QUETIAPINE
     Dosage: 150 MILLIGRAM, PM (NOCTE)
     Route: 065
  20. QUETIAPINE [Suspect]
     Active Substance: QUETIAPINE
     Dosage: 150 MILLIGRAM, PM (NOCTE)
  21. ZOPICLONE [Suspect]
     Active Substance: ZOPICLONE
     Indication: Product used for unknown indication
     Dosage: 3.75 MILLIGRAM, PM (NOCTE)
  22. ZOPICLONE [Suspect]
     Active Substance: ZOPICLONE
     Dosage: 3.75 MILLIGRAM, PM (NOCTE)
     Route: 065
  23. ZOPICLONE [Suspect]
     Active Substance: ZOPICLONE
     Dosage: 3.75 MILLIGRAM, PM (NOCTE)
     Route: 065
  24. ZOPICLONE [Suspect]
     Active Substance: ZOPICLONE
     Dosage: 3.75 MILLIGRAM, PM (NOCTE)
  25. CHOLECALCIFEROL [Suspect]
     Active Substance: CHOLECALCIFEROL
     Indication: Product used for unknown indication
     Dosage: 25 MICROGRAM, QD (25 UG DAILY)
  26. CHOLECALCIFEROL [Suspect]
     Active Substance: CHOLECALCIFEROL
     Dosage: 25 MICROGRAM, QD (25 UG DAILY)
     Route: 065
  27. CHOLECALCIFEROL [Suspect]
     Active Substance: CHOLECALCIFEROL
     Dosage: 25 MICROGRAM, QD (25 UG DAILY)
     Route: 065
  28. CHOLECALCIFEROL [Suspect]
     Active Substance: CHOLECALCIFEROL
     Dosage: 25 MICROGRAM, QD (25 UG DAILY)
  29. FERROUS FUMARATE\FOLIC ACID [Suspect]
     Active Substance: FERROUS FUMARATE\FOLIC ACID
     Indication: Product used for unknown indication
     Dosage: 1 DOSAGE FORM, QOD (ALTERNATIVE DAY)
  30. FERROUS FUMARATE\FOLIC ACID [Suspect]
     Active Substance: FERROUS FUMARATE\FOLIC ACID
     Dosage: 1 DOSAGE FORM, QOD (ALTERNATIVE DAY)
     Route: 065
  31. FERROUS FUMARATE\FOLIC ACID [Suspect]
     Active Substance: FERROUS FUMARATE\FOLIC ACID
     Dosage: 1 DOSAGE FORM, QOD (ALTERNATIVE DAY)
     Route: 065
  32. FERROUS FUMARATE\FOLIC ACID [Suspect]
     Active Substance: FERROUS FUMARATE\FOLIC ACID
     Dosage: 1 DOSAGE FORM, QOD (ALTERNATIVE DAY)
  33. VALPROATE SODIUM [Suspect]
     Active Substance: VALPROATE SODIUM
     Indication: Product used for unknown indication
     Dosage: 300 MILLIGRAM, BID (300 MG 2X/DAY)
  34. VALPROATE SODIUM [Suspect]
     Active Substance: VALPROATE SODIUM
     Dosage: 300 MILLIGRAM, BID (300 MG 2X/DAY)
     Route: 065
  35. VALPROATE SODIUM [Suspect]
     Active Substance: VALPROATE SODIUM
     Dosage: 300 MILLIGRAM, BID (300 MG 2X/DAY)
     Route: 065
  36. VALPROATE SODIUM [Suspect]
     Active Substance: VALPROATE SODIUM
     Dosage: 300 MILLIGRAM, BID (300 MG 2X/DAY)
  37. CYANOCOBALAMIN [Suspect]
     Active Substance: CYANOCOBALAMIN
     Indication: Product used for unknown indication
     Dosage: 1 DOSAGE FORM, QD
  38. CYANOCOBALAMIN [Suspect]
     Active Substance: CYANOCOBALAMIN
     Dosage: 1 DOSAGE FORM, QD
     Route: 065
  39. CYANOCOBALAMIN [Suspect]
     Active Substance: CYANOCOBALAMIN
     Dosage: 1 DOSAGE FORM, QD
     Route: 065
  40. CYANOCOBALAMIN [Suspect]
     Active Substance: CYANOCOBALAMIN
     Dosage: 1 DOSAGE FORM, QD
  41. FENOFIBRATE [Suspect]
     Active Substance: FENOFIBRATE
     Indication: Product used for unknown indication
     Dosage: 96 MILLIGRAM, QD
  42. FENOFIBRATE [Suspect]
     Active Substance: FENOFIBRATE
     Dosage: 96 MILLIGRAM, QD
     Route: 065
  43. FENOFIBRATE [Suspect]
     Active Substance: FENOFIBRATE
     Dosage: 96 MILLIGRAM, QD
     Route: 065
  44. FENOFIBRATE [Suspect]
     Active Substance: FENOFIBRATE
     Dosage: 96 MILLIGRAM, QD
  45. CHOLECALCIFEROL [Concomitant]
     Active Substance: CHOLECALCIFEROL
     Dosage: 25 MICROGRAM, QD
  46. CHOLECALCIFEROL [Concomitant]
     Active Substance: CHOLECALCIFEROL
     Dosage: 25 MICROGRAM, QD
     Route: 065
  47. CHOLECALCIFEROL [Concomitant]
     Active Substance: CHOLECALCIFEROL
     Dosage: 25 MICROGRAM, QD
     Route: 065
  48. CHOLECALCIFEROL [Concomitant]
     Active Substance: CHOLECALCIFEROL
     Dosage: 25 MICROGRAM, QD
  49. FENOFIBRATE [Concomitant]
     Active Substance: FENOFIBRATE
     Dosage: 96 MILLIGRAM, QD
  50. FENOFIBRATE [Concomitant]
     Active Substance: FENOFIBRATE
     Dosage: 96 MILLIGRAM, QD
     Route: 065
  51. FENOFIBRATE [Concomitant]
     Active Substance: FENOFIBRATE
     Dosage: 96 MILLIGRAM, QD
     Route: 065
  52. FENOFIBRATE [Concomitant]
     Active Substance: FENOFIBRATE
     Dosage: 96 MILLIGRAM, QD
  53. QUETIAPINE FUMARATE [Concomitant]
     Active Substance: QUETIAPINE FUMARATE
  54. QUETIAPINE FUMARATE [Concomitant]
     Active Substance: QUETIAPINE FUMARATE
     Route: 065
  55. QUETIAPINE FUMARATE [Concomitant]
     Active Substance: QUETIAPINE FUMARATE
     Route: 065
  56. QUETIAPINE FUMARATE [Concomitant]
     Active Substance: QUETIAPINE FUMARATE
  57. ZOPICLONE [Concomitant]
     Active Substance: ZOPICLONE
  58. ZOPICLONE [Concomitant]
     Active Substance: ZOPICLONE
     Route: 065
  59. ZOPICLONE [Concomitant]
     Active Substance: ZOPICLONE
     Route: 065
  60. ZOPICLONE [Concomitant]
     Active Substance: ZOPICLONE

REACTIONS (6)
  - Acute myocardial infarction [Unknown]
  - Mitral valve incompetence [Unknown]
  - Pulmonary valve incompetence [Unknown]
  - Electrocardiogram abnormal [Unknown]
  - Left atrial dilatation [Unknown]
  - Troponin increased [Unknown]
